FAERS Safety Report 17121005 (Version 1)
Quarter: 2019Q4

REPORT INFORMATION
  Report Type: Spontaneous
  Country: US (occurrence: US)
  Receive Date: 20191113
  Receipt Date: 20191113
  Transmission Date: 20200122
  Serious: Yes (Hospitalization)
  Sender: FDA-Public Use
  Company Number: None

PATIENT
  Sex: Female
  Weight: 48.5 kg

DRUGS (1)
  1. CISPLATIN. [Suspect]
     Active Substance: CISPLATIN

REACTIONS (5)
  - Squamous cell carcinoma [None]
  - Skin graft [None]
  - Osteonecrosis of jaw [None]
  - Radiation fibrosis [None]
  - Osteoradionecrosis [None]

NARRATIVE: CASE EVENT DATE: 20141117
